FAERS Safety Report 5067512-1 (Version None)
Quarter: 2006Q3

REPORT INFORMATION
  Report Type: 
  Country: None (occurrence: None)
  Receive Date: 20060727
  Receipt Date: 20060718
  Transmission Date: 20061208
  Serious: Yes (Hospitalization, Other)
  Sender: FDA-Public Use
  Company Number: 2003024157

PATIENT
  Age: 72 Year
  Sex: Male

DRUGS (5)
  1. CARDURA XL [Suspect]
     Indication: BENIGN PROSTATIC HYPERPLASIA
     Dosage: 4 MG (DAILY),ORAL
     Route: 048
     Dates: start: 20020901, end: 20060503
  2. SIMVASTATIN [Concomitant]
  3. AMLODIPINE BESILATE (AMLODIPINE) [Concomitant]
  4. ANCORON (AMIODARONE HYDROCHLORIDE) [Concomitant]
  5. TIMOLOL MALEATE [Concomitant]

REACTIONS (4)
  - BENIGN PROSTATIC HYPERPLASIA [None]
  - CONDITION AGGRAVATED [None]
  - DRUG INEFFECTIVE [None]
  - PROSTATIC OPERATION [None]
